FAERS Safety Report 9002913 (Version 1)
Quarter: 2012Q4

REPORT INFORMATION
  Report Type: Spontaneous
  Country: GB (occurrence: None)
  Receive Date: 20121226
  Receipt Date: 20121226
  Transmission Date: 20130627
  Serious: Yes (Other)
  Sender: FDA-Public Use
  Company Number: AXC-2012-00585

PATIENT
  Age: 36 Year
  Sex: Female

DRUGS (1)
  1. NITROGLYCERIN (NITROGLYCERIN) RECTAL OINTMENT [Suspect]
     Indication: HAEMORRHOIDS
     Dosage: qd (increased to bid if required), Rectal
     Route: 054
     Dates: start: 20121112, end: 20121112

REACTIONS (9)
  - Palpitations [None]
  - Dyspepsia [None]
  - Dyspnoea exertional [None]
  - Vomiting [None]
  - Chest pain [None]
  - Nausea [None]
  - Aphasia [None]
  - Dizziness [None]
  - Headache [None]
